FAERS Safety Report 10652958 (Version 1)
Quarter: 2014Q4

REPORT INFORMATION
  Report Type: Spontaneous
  Country: US (occurrence: US)
  Receive Date: 20141215
  Receipt Date: 20141215
  Transmission Date: 20150529
  Serious: No
  Sender: FDA-Public Use
  Company Number: US-GLAXOSMITHKLINE-US2014GSK036077

PATIENT
  Age: 22 Year
  Sex: Female

DRUGS (2)
  1. INHALER (NOS) [Concomitant]
     Active Substance: UNSPECIFIED INGREDIENT
  2. VENTOLIN HFA [Suspect]
     Active Substance: ALBUTEROL SULFATE
     Indication: ASTHMA
     Dosage: 1 PUFF(S), PRN

REACTIONS (2)
  - Medication error [Unknown]
  - Intentional product use issue [Not Recovered/Not Resolved]
